FAERS Safety Report 14102799 (Version 1)
Quarter: 2017Q4

REPORT INFORMATION
  Report Type: Report from Study
  Country: US (occurrence: BR)
  Receive Date: 20171018
  Receipt Date: 20171018
  Transmission Date: 20180321
  Serious: Yes (Other)
  Sender: FDA-Public Use
  Company Number: US-SUNOVION-2017SUN004467

PATIENT
  Sex: Male
  Weight: 73 kg

DRUGS (4)
  1. INDACATEROL AND GLYCOPYRROLATE [Suspect]
     Active Substance: GLYCOPYRROLATE\INDACATEROL MALEATE
     Indication: LUNG DISORDER
     Dosage: 1 DF (50 UG OF GLYCOPYRRONIUM BROMIDE, 110 UG OF INDACATEROL), QD; RESPIRATORY
     Route: 055
  2. INDACATEROL AND GLYCOPYRROLATE [Suspect]
     Active Substance: GLYCOPYRROLATE\INDACATEROL MALEATE
     Indication: BLADDER DISORDER
  3. INDACATEROL AND GLYCOPYRROLATE [Suspect]
     Active Substance: GLYCOPYRROLATE\INDACATEROL MALEATE
     Indication: RENAL DISORDER
  4. INDACATEROL AND GLYCOPYRROLATE [Suspect]
     Active Substance: GLYCOPYRROLATE\INDACATEROL MALEATE
     Indication: PROSTATIC DISORDER

REACTIONS (5)
  - Malaise [Unknown]
  - Blood urine present [Unknown]
  - Product use in unapproved indication [Unknown]
  - Deafness [Unknown]
  - Urinary tract infection [Unknown]
